FAERS Safety Report 19735985 (Version 3)
Quarter: 2021Q4

REPORT INFORMATION
  Report Type: Report from Study
  Country: US (occurrence: US)
  Receive Date: 20210823
  Receipt Date: 20211103
  Transmission Date: 20220303
  Serious: Yes (Other)
  Sender: FDA-Public Use
  Company Number: NVSC2021US184603

PATIENT
  Sex: Female

DRUGS (1)
  1. KESIMPTA [Suspect]
     Active Substance: OFATUMUMAB
     Indication: Relapsing-remitting multiple sclerosis
     Dosage: 20 MG, QMO (RECTAL- INTO ANUS)
     Route: 054
     Dates: start: 20210728

REACTIONS (3)
  - Loss of consciousness [Unknown]
  - Pain [Recovered/Resolved]
  - Dizziness [Unknown]
